FAERS Safety Report 16203754 (Version 1)
Quarter: 2019Q2

REPORT INFORMATION
  Report Type: Spontaneous
  Country: US (occurrence: US)
  Receive Date: 20190416
  Receipt Date: 20190416
  Transmission Date: 20190711
  Serious: Yes (Other)
  Sender: FDA-Public Use
  Company Number: US-RISING PHARMACEUTICALS, INC.-2019RIS00188

PATIENT
  Age: 50 Year
  Sex: Female

DRUGS (1)
  1. LEVOFLOXACIN. [Suspect]
     Active Substance: LEVOFLOXACIN
     Route: 048

REACTIONS (4)
  - Respiratory failure [Recovered/Resolved]
  - Foreign body aspiration [Recovered/Resolved]
  - Pneumothorax [Recovered/Resolved]
  - Bronchial obstruction [Recovered/Resolved]
